FAERS Safety Report 4957690-4 (Version None)
Quarter: 2006Q1

REPORT INFORMATION
  Report Type: 
  Country: None (occurrence: None)
  Receive Date: 20060324
  Receipt Date: 20060314
  Transmission Date: 20060701
  Serious: Yes (Other)
  Sender: FDA-Public Use
  Company Number: ESWYE470614MAR06

PATIENT
  Age: 45 Year
  Sex: Female

DRUGS (4)
  1. VENLAFAXINE HCL [Suspect]
     Dosage: 150 MG 1X PER 1 DAY ; 75 MG 1X PER 1 DAY ; 1200 MG 1X PER 1 DAY
     Route: 048
     Dates: start: 20010101, end: 20060101
  2. VENLAFAXINE HCL [Suspect]
     Dosage: 150 MG 1X PER 1 DAY ; 75 MG 1X PER 1 DAY ; 1200 MG 1X PER 1 DAY
     Route: 048
     Dates: start: 20060101, end: 20060101
  3. VENLAFAXINE HCL [Suspect]
     Dosage: 150 MG 1X PER 1 DAY ; 75 MG 1X PER 1 DAY ; 1200 MG 1X PER 1 DAY
     Route: 048
     Dates: start: 20060101
  4. NEURONTIN [Suspect]
     Dosage: 1200 MG 1 X 1 DAY
     Route: 048

REACTIONS (3)
  - DRUG INTERACTION [None]
  - POLYURIA [None]
  - VERTIGO [None]
